FAERS Safety Report 4367919-1 (Version None)
Quarter: 2004Q2

REPORT INFORMATION
  Report Type: 
  Country: None (occurrence: None)
  Receive Date: 20040527
  Receipt Date: 20040312
  Transmission Date: 20050107
  Serious: Yes (Life-Threatening)
  Sender: FDA-Public Use
  Company Number: 235892

PATIENT
  Age: 70 Year
  Sex: Male

DRUGS (3)
  1. NOVOLOG MIX 70/30 [Suspect]
     Indication: INSULIN-REQUIRING TYPE II DIABETES MELLITUS
     Dosage: 40 IU, QD, SUBCUTANEOUS
     Route: 058
     Dates: start: 20040101
  2. NOVOLOG MIX 70/30 [Suspect]
     Indication: INSULIN-REQUIRING TYPE II DIABETES MELLITUS
     Dosage: 45 IU, QD, SUBCUTANEOUS
     Route: 058
     Dates: start: 20040101
  3. NOVOLOG MIX 70/30 [Suspect]
     Dosage: 40 IU, QD, SUBCUTANEOUS
     Route: 058

REACTIONS (1)
  - HYPOGLYCAEMIC COMA [None]
